FAERS Safety Report 17027710 (Version 2)
Quarter: 2019Q4

REPORT INFORMATION
  Report Type: Spontaneous
  Country: US (occurrence: US)
  Receive Date: 20191113
  Receipt Date: 20191202
  Transmission Date: 20200122
  Serious: Yes (Hospitalization)
  Sender: FDA-Public Use
  Company Number: US-ALLERGAN-1944541US

PATIENT
  Sex: Female

DRUGS (7)
  1. BOTOX COSMETIC [Suspect]
     Active Substance: ONABOTULINUMTOXINA
     Indication: SKIN WRINKLING
     Dosage: 15 UNITS, SINGLE
     Route: 065
     Dates: start: 20191015, end: 20191015
  2. NUMBING CREAM [Concomitant]
     Active Substance: LIDOCAINE
     Indication: LOCAL ANAESTHESIA
  3. COLLAGEN [Concomitant]
     Active Substance: COLLAGEN
  4. JUVEDERM VOLUMA XC [Suspect]
     Active Substance: HYALURONIC ACID\LIDOCAINE HYDROCHLORIDE
     Indication: SKIN WRINKLING
     Dosage: UNK, SINGLE
  5. VITAMINS NOS [Concomitant]
     Active Substance: VITAMINS
  6. JUVEDERM VOLUMA XC [Suspect]
     Active Substance: HYALURONIC ACID\LIDOCAINE HYDROCHLORIDE
     Indication: SKIN WRINKLING
  7. BOTOX COSMETIC [Suspect]
     Active Substance: ONABOTULINUMTOXINA
     Indication: SKIN WRINKLING
     Dosage: 10 UNITS, SINGLE
     Route: 065
     Dates: start: 20191015, end: 20191015

REACTIONS (5)
  - Swelling [Recovered/Resolved]
  - Urticaria [Recovered/Resolved]
  - Rash papular [Recovered/Resolved]
  - Swelling face [Recovered/Resolved]
  - Erythema [Recovered/Resolved]

NARRATIVE: CASE EVENT DATE: 201910
